FAERS Safety Report 4942390-7 (Version None)
Quarter: 2006Q1

REPORT INFORMATION
  Report Type: 
  Country: None (occurrence: None)
  Receive Date: 20060313
  Receipt Date: 20050124
  Transmission Date: 20060701
  Serious: No
  Sender: FDA-Public Use
  Company Number: US-GLAXOSMITHKLINE-A0541838A

PATIENT
  Age: 34 Year
  Sex: Female

DRUGS (7)
  1. NICORETTE (MINT) [Suspect]
  2. NICORETTE (ORANGE) [Suspect]
  3. MS CONTIN [Concomitant]
  4. VICODIN [Concomitant]
  5. VALIUM [Concomitant]
  6. NEURONTIN [Concomitant]
  7. ZANAFLEX [Concomitant]

REACTIONS (3)
  - DYSGEUSIA [None]
  - ORAL DISCOMFORT [None]
  - SALIVARY HYPERSECRETION [None]
